FAERS Safety Report 8071813-2 (Version None)
Quarter: 2012Q1

REPORT INFORMATION
  Report Type: 
  Country: None (occurrence: None)
  Receive Date: 20120126
  Receipt Date: 20120123
  Transmission Date: 20120608
  Serious: Yes (Hospitalization)
  Sender: FDA-Public Use
  Company Number: US-BIOGENIDEC-2011BI042463

PATIENT
  Age: 35 Year
  Sex: Female

DRUGS (6)
  1. SYNTHROID [Concomitant]
  2. LITHIUM CARBONATE [Concomitant]
  3. WELLBUTRIN [Concomitant]
  4. PROTONIX [Concomitant]
  5. ANUSOL [Concomitant]
  6. TYSABRI [Suspect]
     Indication: MULTIPLE SCLEROSIS
     Route: 042
     Dates: start: 20070207, end: 20111014

REACTIONS (11)
  - MENINGITIS VIRAL [None]
  - MUSCLE SPASMS [None]
  - RECTAL HAEMORRHAGE [None]
  - FATIGUE [None]
  - DECREASED APPETITE [None]
  - OEDEMA PERIPHERAL [None]
  - INCONTINENCE [None]
  - INSOMNIA [None]
  - PSORIASIS [None]
  - DEAFNESS UNILATERAL [None]
  - MENSTRUAL DISORDER [None]
